FAERS Safety Report 4451970-7 (Version None)
Quarter: 2004Q3

REPORT INFORMATION
  Report Type: 
  Country: None (occurrence: None)
  Receive Date: 20040917
  Receipt Date: 20040906
  Transmission Date: 20050211
  Serious: Yes (Other)
  Sender: FDA-Public Use
  Company Number: AT-JNJFOC-20040901742

PATIENT
  Sex: Male
  Weight: 67 kg

DRUGS (4)
  1. DIPIDOLOR [Suspect]
     Indication: CORONARY ARTERIAL STENT INSERTION
     Route: 058
  2. DIPIDOLOR [Suspect]
     Route: 058
  3. DIPIDOLOR [Suspect]
     Indication: OSTEOPOROSIS
     Route: 058
  4. DURAGESIC [Suspect]
     Indication: DRUG USE FOR UNKNOWN INDICATION
     Route: 062

REACTIONS (3)
  - INJECTION SITE NECROSIS [None]
  - INJECTION SITE NODULE [None]
  - INJECTION SITE PAIN [None]
